FAERS Safety Report 8816540 (Version 1)
Quarter: 2012Q4

REPORT INFORMATION
  Report Type: Spontaneous
  Country: US (occurrence: None)
  Receive Date: 20120927
  Receipt Date: 20120927
  Transmission Date: 20130627
  Serious: Yes (Life-Threatening, Hospitalization)
  Sender: FDA-Public Use
  Company Number: 139162

PATIENT
  Age: 49 Year
  Sex: Male

DRUGS (1)
  1. DAUNORUBICIN HCL [Suspect]
     Indication: ACUTE MYELOID LEUKEMIA
     Dates: start: 20120419

REACTIONS (10)
  - Cardiac arrest [None]
  - Renal failure acute [None]
  - Metabolic acidosis [None]
  - Hyperkalaemia [None]
  - Platelet count decreased [None]
  - Anaemia [None]
  - Febrile neutropenia [None]
  - Sepsis [None]
  - Hypotension [None]
  - Renal tubular necrosis [None]
